FAERS Safety Report 7664888-3 (Version None)
Quarter: 2011Q3

REPORT INFORMATION
  Report Type: 
  Country: None (occurrence: None)
  Receive Date: 20110806
  Receipt Date: 20110204
  Transmission Date: 20111222
  Serious: No
  Sender: FDA-Public Use
  Company Number: US-ABBOTT-11P-163-0703684-00

PATIENT
  Sex: Female
  Weight: 54.48 kg

DRUGS (2)
  1. NIASPAN [Suspect]
     Indication: HIGH DENSITY LIPOPROTEIN DECREASED
     Route: 048
     Dates: start: 20110125
  2. ASPIRIN [Concomitant]
     Indication: PREMEDICATION
     Route: 048

REACTIONS (5)
  - RASH ERYTHEMATOUS [None]
  - FLUSHING [None]
  - URTICARIA [None]
  - ERYTHEMA [None]
  - RASH PRURITIC [None]
